FAERS Safety Report 11920469 (Version 1)
Quarter: 2016Q1

REPORT INFORMATION
  Report Type: Spontaneous
  Country: US (occurrence: US)
  Receive Date: 20160115
  Receipt Date: 20160115
  Transmission Date: 20160526
  Serious: Yes (Hospitalization, Other)
  Sender: FDA-Public Use
  Company Number: US-ELI_LILLY_AND_COMPANY-US201601005007

PATIENT
  Age: 12 Year
  Sex: Male
  Weight: 69.84 kg

DRUGS (11)
  1. DEPAKOTE [Suspect]
     Active Substance: DIVALPROEX SODIUM
     Indication: AFFECTIVE DISORDER
     Dosage: 300 MG, BID
     Route: 048
     Dates: start: 20120301
  2. DEPAKOTE [Suspect]
     Active Substance: DIVALPROEX SODIUM
     Dosage: 250 MG, TID
     Route: 048
  3. PROZAC [Suspect]
     Active Substance: FLUOXETINE HYDROCHLORIDE
     Indication: PRODUCT USED FOR UNKNOWN INDICATION
     Dosage: 10 MG, QD
     Route: 048
     Dates: start: 20121108
  4. THORAZINE [Suspect]
     Active Substance: CHLORPROMAZINE
     Dosage: 25 MG, PRN
     Route: 048
  5. VYVANSE [Suspect]
     Active Substance: LISDEXAMFETAMINE DIMESYLATE
     Dosage: 20 MG, QD
     Route: 048
     Dates: end: 20130924
  6. CATAPRES                           /00171101/ [Suspect]
     Active Substance: CLONIDINE
     Dosage: 0.1 MG, BID
     Route: 048
  7. DESYREL [Suspect]
     Active Substance: TRAZODONE HYDROCHLORIDE
     Indication: PRODUCT USED FOR UNKNOWN INDICATION
     Dosage: 12.5 MG, EACH EVENING
     Route: 048
     Dates: start: 20130617
  8. VYVANSE [Suspect]
     Active Substance: LISDEXAMFETAMINE DIMESYLATE
     Indication: PRODUCT USED FOR UNKNOWN INDICATION
     Dosage: 40 MG, EACH EVENING
     Route: 048
     Dates: start: 20130123, end: 20130924
  9. DEPAKOTE [Suspect]
     Active Substance: DIVALPROEX SODIUM
     Dosage: 250 MG, BID
     Route: 048
  10. CATAPRES                           /00171101/ [Suspect]
     Active Substance: CLONIDINE
     Indication: PRODUCT USED FOR UNKNOWN INDICATION
     Dosage: 0.2 MG, EACH EVENING
     Route: 048
     Dates: start: 20120301
  11. THORAZINE [Suspect]
     Active Substance: CHLORPROMAZINE
     Indication: AGGRESSION
     Dosage: 20 MG, TID
     Route: 048
     Dates: start: 20130326

REACTIONS (8)
  - Suicidal ideation [Unknown]
  - Aggression [Unknown]
  - Agitation [Recovered/Resolved]
  - Sleep disorder [Unknown]
  - Treatment noncompliance [Unknown]
  - Affective disorder [Recovered/Resolved]
  - Aggression [Recovered/Resolved]
  - Affective disorder [Recovered/Resolved]

NARRATIVE: CASE EVENT DATE: 201303
